FAERS Safety Report 8547028-8 (Version None)
Quarter: 2012Q3

REPORT INFORMATION
  Report Type: 
  Country: None (occurrence: None)
  Receive Date: 20120727
  Receipt Date: 20120309
  Transmission Date: 20120928
  Serious: No
  Sender: FDA-Public Use
  Company Number: US-ASTRAZENECA-2012SE16963

PATIENT
  Age: 31 Year
  Sex: Female

DRUGS (1)
  1. SEROQUEL XR [Suspect]
     Route: 048

REACTIONS (3)
  - CONDUCT DISORDER [None]
  - DRUG DOSE OMISSION [None]
  - PSYCHOTIC BEHAVIOUR [None]
